FAERS Safety Report 4674966-9 (Version None)
Quarter: 2005Q2

REPORT INFORMATION
  Report Type: 
  Country: None (occurrence: None)
  Receive Date: 20050526
  Receipt Date: 20050201
  Transmission Date: 20051028
  Serious: Yes (Other)
  Sender: FDA-Public Use
  Company Number: 2004242271US

PATIENT
  Age: 47 Year
  Sex: Male

DRUGS (3)
  1. BEXTRA [Suspect]
     Indication: BACK PAIN
     Dates: start: 20021018, end: 20021120
  2. FLEXERIL [Concomitant]
  3. TRAZODONE HCL [Concomitant]

REACTIONS (2)
  - STEVENS-JOHNSON SYNDROME [None]
  - TOXIC EPIDERMAL NECROLYSIS [None]
